FAERS Safety Report 5262751-9 (Version None)
Quarter: 2007Q1

REPORT INFORMATION
  Report Type: 
  Country: None (occurrence: None)
  Receive Date: 20070312
  Receipt Date: 20070308
  Transmission Date: 20070707
  Serious: Yes (Other)
  Sender: FDA-Public Use
  Company Number: 539

PATIENT
  Age: 56 Year
  Sex: Female
  Weight: 145 kg

DRUGS (16)
  1. FLOLAN [Suspect]
     Dosage: 45NGKM UNKNOWN
     Route: 042
     Dates: start: 20061101
  2. ZOCOR [Concomitant]
     Dosage: 20MG AT NIGHT
     Route: 048
  3. COZAAR [Concomitant]
     Dosage: 100MG PER DAY
     Route: 048
  4. LASIX [Concomitant]
     Dosage: 60MG PER DAY
     Route: 048
  5. COUMADIN [Concomitant]
     Dosage: 5MG PER DAY
     Route: 048
  6. FLUOXETINE [Concomitant]
     Dosage: 20MG PER DAY
  7. ISOSORBIDE MONONITRATE [Concomitant]
     Dosage: 60MG AT NIGHT
  8. NIACIN [Concomitant]
     Dosage: 1000MG PER DAY
     Route: 048
  9. MAGNESIUM OXIDE [Concomitant]
     Dosage: 400MG PER DAY
     Route: 048
  10. BUPROPION HCL [Concomitant]
     Dosage: 150MG TWICE PER DAY
  11. OCUVITE [Concomitant]
     Dosage: 1TAB TWICE PER DAY
     Route: 048
  12. MULTI-VITAMIN [Concomitant]
  13. GLUCOSAMINE CHONDROITIN [Concomitant]
     Dosage: 2TAB PER DAY
     Route: 048
  14. TOPROL-XL [Concomitant]
     Dosage: 50MG PER DAY
     Route: 048
  15. POTASSIUM CHLORIDE [Concomitant]
     Dosage: 20MEQ PER DAY
     Route: 048
  16. HEPARIN [Concomitant]
     Dosage: 500UNIT PER DAY
     Route: 042

REACTIONS (2)
  - CATHETER RELATED COMPLICATION [None]
  - PHARMACEUTICAL PRODUCT COMPLAINT [None]
